FAERS Safety Report 9417903 (Version 1)
Quarter: 2013Q3

REPORT INFORMATION
  Report Type: Spontaneous
  Country: US (occurrence: US)
  Receive Date: 20130724
  Receipt Date: 20130724
  Transmission Date: 20140515
  Serious: No
  Sender: FDA-Public Use
  Company Number: US-BAUSCH-BL-2012-001357

PATIENT
  Age: 68 Year
  Sex: Female

DRUGS (1)
  1. OPCON-A [Suspect]
     Indication: EYE PRURITUS
     Dosage: ONE DROP IN EACH EYE ONCE
     Route: 047
     Dates: start: 20121004, end: 20121004

REACTIONS (3)
  - Instillation site pain [Recovered/Resolved]
  - Mydriasis [Recovered/Resolved]
  - Vision blurred [Recovered/Resolved]
